FAERS Safety Report 19829309 (Version 1)
Quarter: 2021Q3

REPORT INFORMATION
  Report Type: Spontaneous
  Country: FR (occurrence: FR)
  Receive Date: 20210914
  Receipt Date: 20210914
  Transmission Date: 20211014
  Serious: Yes (Other)
  Sender: FDA-Public Use
  Company Number: FR-MYLANLABS-2021M1061115

PATIENT
  Age: 20 Year
  Sex: Female

DRUGS (11)
  1. SILTUXIMAB [Suspect]
     Active Substance: SILTUXIMAB
     Dosage: INFUSION 2
  2. SILTUXIMAB [Suspect]
     Active Substance: SILTUXIMAB
     Dosage: INFUSION 8
  3. METHOTREXATE. [Suspect]
     Active Substance: METHOTREXATE
     Indication: STILL^S DISEASE
     Dosage: 20 MILLIGRAM, QW
     Route: 065
  4. SILTUXIMAB [Suspect]
     Active Substance: SILTUXIMAB
     Dosage: INFUSION 5
     Route: 042
     Dates: start: 20170420
  5. SILTUXIMAB [Suspect]
     Active Substance: SILTUXIMAB
     Dosage: INFUSION 6
     Route: 042
     Dates: start: 20170511
  6. SILTUXIMAB [Suspect]
     Active Substance: SILTUXIMAB
     Dosage: INFUSION 10
     Route: 042
     Dates: start: 20170803
  7. SILTUXIMAB [Suspect]
     Active Substance: SILTUXIMAB
     Indication: STILL^S DISEASE
     Dosage: 11 MILLIGRAM/KILOGRAM, Q3W, 690 MILLIGRAM PER INFUSION, INFUSION 1
     Dates: start: 20170127
  8. SILTUXIMAB [Suspect]
     Active Substance: SILTUXIMAB
     Dosage: INFUSION 9
  9. SILTUXIMAB [Suspect]
     Active Substance: SILTUXIMAB
     Dosage: INFUSION 7
     Route: 042
     Dates: start: 20170601
  10. SILTUXIMAB [Suspect]
     Active Substance: SILTUXIMAB
     Dosage: INFUSION 3
     Route: 042
     Dates: start: 20170309
  11. SILTUXIMAB [Suspect]
     Active Substance: SILTUXIMAB
     Dosage: INFUSION 4
     Route: 042
     Dates: start: 20170330

REACTIONS (2)
  - Off label use [Unknown]
  - Hypertriglyceridaemia [Recovering/Resolving]
